FAERS Safety Report 13756742 (Version 2)
Quarter: 2017Q3

REPORT INFORMATION
  Report Type: Spontaneous
  Country: KR (occurrence: KR)
  Receive Date: 20170714
  Receipt Date: 20170802
  Transmission Date: 20171127
  Serious: Yes (Hospitalization, Other)
  Sender: FDA-Public Use
  Company Number: KR-009507513-1705KOR007843

PATIENT
  Age: 58 Year
  Sex: Male
  Weight: 41 kg

DRUGS (58)
  1. EMEND (FOSAPREPITANT DIMEGLUMINE) [Suspect]
     Active Substance: FOSAPREPITANT DIMEGLUMINE
     Dosage: 150 MG, ONCE
     Route: 042
     Dates: start: 20170110, end: 20170110
  2. DEXAMETHASONE. [Concomitant]
     Active Substance: DEXAMETHASONE
     Dosage: STRENGTH:5MG/ML; 8 MG, ONCE
     Route: 042
     Dates: start: 20160831, end: 20160831
  3. DEXAMETHASONE. [Concomitant]
     Active Substance: DEXAMETHASONE
     Dosage: STRENGTH:5MG/ML; 8 MG, ONCE
     Route: 042
     Dates: start: 20161104, end: 20161104
  4. MANNITOL. [Concomitant]
     Active Substance: MANNITOL
     Dosage: 100 ML, ONCE
     Route: 042
     Dates: start: 20161207, end: 20161207
  5. EMEND (FOSAPREPITANT DIMEGLUMINE) [Suspect]
     Active Substance: FOSAPREPITANT DIMEGLUMINE
     Indication: PROPHYLAXIS OF NAUSEA AND VOMITING
     Dosage: 150 MG, ONCE
     Route: 042
     Dates: start: 20160730, end: 20160730
  6. EMEND (FOSAPREPITANT DIMEGLUMINE) [Suspect]
     Active Substance: FOSAPREPITANT DIMEGLUMINE
     Dosage: 150 MG, ONCE
     Route: 042
     Dates: start: 20161207, end: 20161207
  7. FLUOROURACIL. [Concomitant]
     Active Substance: FLUOROURACIL
     Dosage: STRENGTH: 1000MG/20ML; 1500 MG, QD, CYCLE 4
     Route: 042
     Dates: start: 20161103, end: 20161106
  8. DEXAMETHASONE. [Concomitant]
     Active Substance: DEXAMETHASONE
     Dosage: STRENGTH:5MG/ML; 12 MG, ONCE
     Route: 042
     Dates: start: 20161103, end: 20161103
  9. DEXAMETHASONE. [Concomitant]
     Active Substance: DEXAMETHASONE
     Dosage: STRENGTH:5MG/ML; 8 MG, QD
     Route: 042
     Dates: start: 20170112, end: 20170113
  10. TRIDOL (TRAMADOL HYDROCHLORIDE) [Concomitant]
     Indication: PAIN PROPHYLAXIS
     Dosage: STRENGTH: 50MG/ML; 50 MG, ONCE
     Route: 042
     Dates: start: 20160728, end: 20160728
  11. LASIX [Concomitant]
     Active Substance: FUROSEMIDE
     Indication: PREMEDICATION
     Dosage: STRENGTH: 20MG/2ML; 20 MG, ONCE
     Route: 042
     Dates: start: 20160730, end: 20160730
  12. MANNITOL. [Concomitant]
     Active Substance: MANNITOL
     Dosage: 100 ML, ONCE
     Route: 042
     Dates: start: 20161103, end: 20161103
  13. EMEND (FOSAPREPITANT DIMEGLUMINE) [Suspect]
     Active Substance: FOSAPREPITANT DIMEGLUMINE
     Dosage: 150 MG, ONCE
     Route: 042
     Dates: start: 20161006, end: 20161006
  14. EMEND (FOSAPREPITANT DIMEGLUMINE) [Suspect]
     Active Substance: FOSAPREPITANT DIMEGLUMINE
     Dosage: 150 MG, ONCE
     Route: 042
     Dates: start: 20161103, end: 20161103
  15. DEXAMETHASONE. [Concomitant]
     Active Substance: DEXAMETHASONE
     Indication: ANTIEMETIC SUPPORTIVE CARE
     Dosage: STRENGTH:5MG/ML; 12 MG, ONCE
     Route: 042
     Dates: start: 20160730, end: 20160730
  16. DEXAMETHASONE. [Concomitant]
     Active Substance: DEXAMETHASONE
     Dosage: STRENGTH:5MG/ML; 8 MG, QD
     Route: 042
     Dates: start: 20161105, end: 20161106
  17. DEXAMETHASONE. [Concomitant]
     Active Substance: DEXAMETHASONE
     Dosage: STRENGTH:5MG/ML; 12 MG, ONCE
     Route: 042
     Dates: start: 20161207, end: 20161207
  18. DEXAMETHASONE. [Concomitant]
     Active Substance: DEXAMETHASONE
     Dosage: STRENGTH:5MG/ML; 12 MG, ONCE
     Route: 042
     Dates: start: 20170110, end: 20170110
  19. SANCUSO [Concomitant]
     Active Substance: GRANISETRON
     Indication: ANTIEMETIC SUPPORTIVE CARE
     Dosage: STRENGTH: 80.2X66.6 MM2; 1 PATCH, QD
     Route: 062
     Dates: start: 20160729, end: 20160805
  20. SANCUSO [Concomitant]
     Active Substance: GRANISETRON
     Dosage: STRENGTH: 80.2X66.6 MM2; 1 PATCH, QD
     Route: 062
     Dates: start: 20161206, end: 20161213
  21. LASIX [Concomitant]
     Active Substance: FUROSEMIDE
     Dosage: STRENGTH: 20MG/2ML; 20 MG, ONCE
     Route: 042
     Dates: start: 20161103, end: 20161103
  22. MANNITOL. [Concomitant]
     Active Substance: MANNITOL
     Dosage: 100 ML, ONCE
     Route: 042
     Dates: start: 20161006, end: 20161006
  23. MANNITOL. [Concomitant]
     Active Substance: MANNITOL
     Dosage: 100 ML, ONCE
     Route: 042
     Dates: start: 20170110, end: 20170110
  24. CISPLATIN. [Concomitant]
     Active Substance: CISPLATIN
     Indication: CHEMOTHERAPY
     Dosage: STRENGTH: 50MG/ 100ML, 105 MG, ONCE, CYCLE 1
     Route: 042
     Dates: start: 20160730, end: 20160730
  25. CISPLATIN. [Concomitant]
     Active Substance: CISPLATIN
     Dosage: STRENGTH: 50MG/ 100ML, 90 MG, ONCE, CYCLE 5
     Route: 042
     Dates: start: 20161207, end: 20161207
  26. FLUOROURACIL. [Concomitant]
     Active Substance: FLUOROURACIL
     Indication: CHEMOTHERAPY
     Dosage: STRENGTH: 1000MG/20ML; 1680 MG, QD, CYCLE 1
     Route: 042
     Dates: start: 20160730, end: 20160802
  27. FLUOROURACIL. [Concomitant]
     Active Substance: FLUOROURACIL
     Dosage: STRENGTH: 1000MG/20ML; 1680 MG, QD, CYCLE 2
     Route: 042
     Dates: start: 20160830, end: 20160902
  28. FLUOROURACIL. [Concomitant]
     Active Substance: FLUOROURACIL
     Dosage: STRENGTH: 1000MG/20ML; 1500 MG, QD, CYCLE 6
     Route: 042
     Dates: start: 20170110, end: 20170113
  29. DEXAMETHASONE. [Concomitant]
     Active Substance: DEXAMETHASONE
     Dosage: STRENGTH:5MG/ML; 8 MG, ONCE
     Route: 042
     Dates: start: 20160731, end: 20160731
  30. DEXAMETHASONE. [Concomitant]
     Active Substance: DEXAMETHASONE
     Dosage: STRENGTH:5MG/ML; 8 MG, QD
     Route: 042
     Dates: start: 20160801, end: 20160802
  31. DEXAMETHASONE. [Concomitant]
     Active Substance: DEXAMETHASONE
     Dosage: STRENGTH:5MG/ML; 12 MG, ONCE
     Route: 042
     Dates: start: 20160830, end: 20160830
  32. DEXAMETHASONE. [Concomitant]
     Active Substance: DEXAMETHASONE
     Dosage: STRENGTH:5MG/ML; 8 MG, QD
     Route: 042
     Dates: start: 20161208, end: 20161210
  33. SANCUSO [Concomitant]
     Active Substance: GRANISETRON
     Dosage: STRENGTH: 80.2X66.6 MM2; 1 PATCH, QD
     Route: 062
     Dates: start: 20160829, end: 20160905
  34. SANCUSO [Concomitant]
     Active Substance: GRANISETRON
     Dosage: STRENGTH: 80.2X66.6 MM2; 1 PATCH, QD
     Route: 062
     Dates: start: 20161102, end: 20161109
  35. PENIRAMIN [Concomitant]
     Indication: RHINORRHOEA
     Dosage: 2 MG, BID
     Route: 048
     Dates: start: 20160727, end: 20160729
  36. ACTIFED (PSEUDOEPHEDRINE HYDROCHLORIDE (+) TRIPROLIDINE HYDROCHLORIDE) [Concomitant]
     Indication: RHINORRHOEA
     Dosage: 10 ML, TID
     Route: 048
     Dates: start: 20160729, end: 20160730
  37. LASIX [Concomitant]
     Active Substance: FUROSEMIDE
     Dosage: STRENGTH: 20MG/2ML; 20 MG, ONCE
     Route: 042
     Dates: start: 20160830, end: 20160830
  38. MANNITOL. [Concomitant]
     Active Substance: MANNITOL
     Indication: PREMEDICATION
     Dosage: 100 ML, ONCE
     Route: 042
     Dates: start: 20160730, end: 20160730
  39. CISPLATIN. [Concomitant]
     Active Substance: CISPLATIN
     Dosage: STRENGTH: 50MG/ 100ML, 90 MG, ONCE, CYCLE 3
     Route: 042
     Dates: start: 20161006, end: 20161006
  40. CISPLATIN. [Concomitant]
     Active Substance: CISPLATIN
     Dosage: STRENGTH: 50MG/ 100ML, 90 MG, ONCE, CYCLE 4
     Route: 042
     Dates: start: 20161103, end: 20161103
  41. FLUOROURACIL. [Concomitant]
     Active Substance: FLUOROURACIL
     Dosage: STRENGTH: 1000MG/20ML; 1500 MG, QD, CYCLE 3
     Route: 042
     Dates: start: 20161006, end: 20161009
  42. DEXAMETHASONE. [Concomitant]
     Active Substance: DEXAMETHASONE
     Dosage: STRENGTH:5MG/ML; 12 MG, ONCE
     Route: 042
     Dates: start: 20161006, end: 20161006
  43. LASIX [Concomitant]
     Active Substance: FUROSEMIDE
     Dosage: STRENGTH: 20MG/2ML; 20 MG, ONCE
     Route: 042
     Dates: start: 20161207, end: 20161207
  44. LASIX [Concomitant]
     Active Substance: FUROSEMIDE
     Dosage: STRENGTH: 20MG/2ML; 20 MG, ONCE
     Route: 042
     Dates: start: 20170110, end: 20170110
  45. ULTRACET [Concomitant]
     Active Substance: ACETAMINOPHEN\TRAMADOL HYDROCHLORIDE
     Indication: CANCER PAIN
     Dosage: 1 TABLET, TID
     Route: 048
     Dates: start: 20160713
  46. CEFMETAZOLE SODIUM [Concomitant]
     Active Substance: CEFMETAZOLE SODIUM
     Indication: PREMEDICATION
     Dosage: 1 G, ONCE
     Route: 042
     Dates: start: 20160728, end: 20160728
  47. LASIX [Concomitant]
     Active Substance: FUROSEMIDE
     Dosage: STRENGTH: 20MG/2ML; 20 MG, ONCE
     Route: 042
     Dates: start: 20161006, end: 20161006
  48. EMEND (FOSAPREPITANT DIMEGLUMINE) [Suspect]
     Active Substance: FOSAPREPITANT DIMEGLUMINE
     Dosage: 150 MG, ONCE
     Route: 042
     Dates: start: 20160830, end: 20160830
  49. CISPLATIN. [Concomitant]
     Active Substance: CISPLATIN
     Dosage: STRENGTH: 50MG/ 100ML, 105 MG, ONCE, CYCLE 2
     Route: 042
     Dates: start: 20160830, end: 20160830
  50. DEXAMETHASONE. [Concomitant]
     Active Substance: DEXAMETHASONE
     Dosage: STRENGTH:5MG/ML; 8 MG, QD
     Route: 042
     Dates: start: 20160901, end: 20160902
  51. DEXAMETHASONE. [Concomitant]
     Active Substance: DEXAMETHASONE
     Dosage: STRENGTH:5MG/ML; 8 MG, ONCE
     Route: 042
     Dates: start: 20170111, end: 20170111
  52. SANCUSO [Concomitant]
     Active Substance: GRANISETRON
     Dosage: STRENGTH: 80.2X66.6 MM2; 1 PATCH, QD
     Route: 062
     Dates: start: 20161005, end: 20161012
  53. ENDIS [Concomitant]
     Indication: INCREASED VISCOSITY OF BRONCHIAL SECRETION
     Dosage: 300 MG, BID
     Route: 048
     Dates: start: 20160727, end: 20161107
  54. ACTIFED (PSEUDOEPHEDRINE HYDROCHLORIDE (+) TRIPROLIDINE HYDROCHLORIDE) [Concomitant]
     Dosage: 10 ML, TID
     Route: 048
     Dates: start: 20160830, end: 20160903
  55. MANNITOL. [Concomitant]
     Active Substance: MANNITOL
     Dosage: 100 ML, ONCE
     Route: 042
     Dates: start: 20160830, end: 20160830
  56. CISPLATIN. [Concomitant]
     Active Substance: CISPLATIN
     Dosage: STRENGTH: 50MG/ 100ML, 90 MG, ONCE, CYCLE 6
     Route: 042
     Dates: start: 20170110, end: 20170110
  57. FLUOROURACIL. [Concomitant]
     Active Substance: FLUOROURACIL
     Dosage: STRENGTH: 1000MG/20ML; 1500 MG, QD, CYCLE 5
     Route: 042
     Dates: start: 20161207, end: 20161210
  58. DEXAMETHASONE. [Concomitant]
     Active Substance: DEXAMETHASONE
     Dosage: STRENGTH:5MG/ML; 8 MG, QD
     Route: 042
     Dates: start: 20161007, end: 20161009

REACTIONS (9)
  - Hiccups [Recovered/Resolved]
  - Hiccups [Recovered/Resolved]
  - Nausea [Recovered/Resolved]
  - Hiccups [Recovered/Resolved]
  - Hiccups [Recovered/Resolved]
  - Herpes virus infection [Recovered/Resolved]
  - Nausea [Recovered/Resolved]
  - Nausea [Recovered/Resolved]
  - Pneumonia [Recovered/Resolved]

NARRATIVE: CASE EVENT DATE: 20160802
